FAERS Safety Report 6828752-1 (Version None)
Quarter: 2010Q3

REPORT INFORMATION
  Report Type: 
  Country: None (occurrence: None)
  Receive Date: 20100709
  Receipt Date: 20070220
  Transmission Date: 20110219
  Serious: No
  Sender: FDA-Public Use
  Company Number: US-PFIZER INC-2007013666

PATIENT
  Sex: Male
  Weight: 95.25 kg

DRUGS (7)
  1. CHANTIX [Suspect]
     Indication: SMOKING CESSATION THERAPY
     Dates: start: 20070101
  2. WARFARIN SODIUM [Concomitant]
  3. HYDROCHLOROTHIAZIDE [Concomitant]
     Indication: HYPERTENSION
  4. ENALAPRIL [Concomitant]
     Indication: HYPERTENSION
  5. VYTORIN [Concomitant]
  6. ACETYLSALICYLIC ACID [Concomitant]
  7. PLAVIX [Concomitant]

REACTIONS (4)
  - ABDOMINAL PAIN UPPER [None]
  - CONSTIPATION [None]
  - FLATULENCE [None]
  - NAUSEA [None]
